FAERS Safety Report 8146500-2 (Version None)
Quarter: 2012Q1

REPORT INFORMATION
  Report Type: 
  Country: None (occurrence: None)
  Receive Date: 20120217
  Receipt Date: 20111110
  Transmission Date: 20120608
  Serious: No
  Sender: FDA-Public Use
  Company Number: US-ABBOTT-11P-163-0872922-00

PATIENT
  Sex: Female
  Weight: 102.6 kg

DRUGS (4)
  1. SIMCOR [Suspect]
     Indication: PRODUCT USED FOR UNKNOWN INDICATION
     Dosage: 1000/20MG AT BEDTIME
  2. AZOR [Concomitant]
     Indication: PRODUCT USED FOR UNKNOWN INDICATION
  3. TEKTURNA [Concomitant]
     Indication: PRODUCT USED FOR UNKNOWN INDICATION
  4. SIMCOR [Suspect]
     Dosage: 500/20MG
     Dates: start: 20111109

REACTIONS (3)
  - FEELING HOT [None]
  - FLUSHING [None]
  - PRURITUS [None]
